FAERS Safety Report 7313851-0 (Version None)
Quarter: 2011Q1

REPORT INFORMATION
  Report Type: 
  Country: None (occurrence: None)
  Receive Date: 20110225
  Receipt Date: 20110216
  Transmission Date: 20110831
  Serious: Yes (Other)
  Sender: FDA-Public Use
  Company Number: BR-ASTRAZENECA-2010SE22470

PATIENT
  Age: 43 Year
  Sex: Male
  Weight: 79 kg

DRUGS (6)
  1. CLOPIDOGREL [Concomitant]
     Indication: ARTERIAL INJURY
     Route: 048
     Dates: start: 20090301
  2. CRESTOR [Suspect]
     Route: 048
     Dates: start: 20100201
  3. CRESTOR [Suspect]
     Route: 048
     Dates: start: 20100201
  4. ASA [Concomitant]
     Indication: ARTERIAL INJURY
     Route: 048
     Dates: start: 20090301
  5. CRESTOR [Suspect]
     Indication: ARTERIAL INJURY
     Route: 048
     Dates: start: 20090301
  6. CRESTOR [Suspect]
     Indication: BLOOD CHOLESTEROL ABNORMAL
     Route: 048
     Dates: start: 20090301

REACTIONS (1)
  - OFF LABEL USE [None]
